FAERS Safety Report 15391047 (Version 1)
Quarter: 2018Q3

REPORT INFORMATION
  Report Type: Spontaneous
  Country: US (occurrence: US)
  Receive Date: 20180910
  Receipt Date: 20180910
  Transmission Date: 20181010
  Serious: Yes (Hospitalization)
  Sender: FDA-Public Use
  Company Number: None

PATIENT
  Age: 66 Year
  Sex: Male

DRUGS (2)
  1. IRBESARTAN 300 MG [Suspect]
     Active Substance: IRBESARTAN
     Indication: HYPERTENSION
     Route: 048
     Dates: start: 20180813, end: 20180906
  2. BYSTOLIC [Concomitant]
     Active Substance: NEBIVOLOL HYDROCHLORIDE
     Dates: start: 20180509, end: 20180906

REACTIONS (4)
  - Hypertension [None]
  - Headache [None]
  - Product substitution issue [None]
  - Product use issue [None]

NARRATIVE: CASE EVENT DATE: 20180906
